FAERS Safety Report 6487684-1 (Version None)
Quarter: 2009Q4

REPORT INFORMATION
  Report Type: 
  Country: None (occurrence: None)
  Receive Date: 20091210
  Receipt Date: 20091130
  Transmission Date: 20100525
  Serious: Yes (Hospitalization)
  Sender: FDA-Public Use
  Company Number: FR-ABBOTT-09P-056-0601745-00

PATIENT
  Sex: Female

DRUGS (7)
  1. DEPAKOTE [Suspect]
     Indication: BIPOLAR DISORDER
     Dosage: OVERDOSE
     Route: 048
     Dates: end: 20090801
  2. DEPAKOTE [Suspect]
     Indication: BIPOLAR I DISORDER
     Route: 048
     Dates: start: 20090802, end: 20090802
  3. DEPAKOTE [Suspect]
     Route: 048
     Dates: start: 20090801
  4. SEROPLEX FILM-COATED TABLETS [Suspect]
     Indication: BIPOLAR DISORDER
     Dosage: OVERDOSE
     Route: 048
     Dates: end: 20090801
  5. SEROPLEX FILM-COATED TABLETS [Suspect]
     Indication: BIPOLAR I DISORDER
     Route: 048
     Dates: start: 20090802, end: 20090802
  6. ABILIFY [Suspect]
     Indication: BIPOLAR DISORDER
     Dosage: OVERDOSE
     Route: 048
     Dates: start: 20090802, end: 20090802
  7. ABILIFY [Suspect]
     Indication: BIPOLAR I DISORDER

REACTIONS (7)
  - AMMONIA INCREASED [None]
  - BLOOD LACTIC ACID INCREASED [None]
  - BRAIN OEDEMA [None]
  - DRUG LEVEL ABOVE THERAPEUTIC [None]
  - EXTRAPYRAMIDAL DISORDER [None]
  - INTENTIONAL OVERDOSE [None]
  - TACHYCARDIA [None]
